FAERS Safety Report 4329192-X (Version None)
Quarter: 2004Q1

REPORT INFORMATION
  Report Type: 
  Country: None (occurrence: None)
  Receive Date: 20040329
  Receipt Date: 20031229
  Transmission Date: 20041129
  Serious: No
  Sender: FDA-Public Use
  Company Number: 03P-163-0245850-00

PATIENT
  Age: 60 Year
  Sex: Female

DRUGS (9)
  1. HUMIRA [Suspect]
     Indication: RHEUMATOID ARTHRITIS
     Dosage: 40 MG, 1 IN 2 WK, SUBCUTANEOUS
     Route: 058
     Dates: start: 20031001
  2. METHOTREXATE [Concomitant]
  3. LANSOPRAZOLE [Concomitant]
  4. ROFECOXIB [Concomitant]
  5. METOPROLOL SUCCINATE [Concomitant]
  6. TRIAMTERENE [Concomitant]
  7. IRBESARTAN [Concomitant]
  8. FOLIC ACID [Concomitant]
  9. ESTRADIOL [Concomitant]

REACTIONS (1)
  - INJECTION SITE HAEMORRHAGE [None]
